FAERS Safety Report 8138308-9 (Version None)
Quarter: 2012Q1

REPORT INFORMATION
  Report Type: 
  Country: None (occurrence: None)
  Receive Date: 20120213
  Receipt Date: 20120130
  Transmission Date: 20120608
  Serious: Yes (Other)
  Sender: FDA-Public Use
  Company Number: DE-1190233

PATIENT
  Sex: Female

DRUGS (8)
  1. PULMICORT-100 [Concomitant]
  2. CILOXAN [Suspect]
     Indication: ASTHMA
     Dosage: 15 GTT BID RESPIRATORY (INHALATION), 8 GTT BD RESPIRATORY INHALATION
     Route: 055
     Dates: start: 20120118, end: 20120121
  3. CILOXAN [Suspect]
     Indication: PULMONARY CONGESTION
     Dosage: 15 GTT BID RESPIRATORY (INHALATION), 8 GTT BD RESPIRATORY INHALATION
     Route: 055
     Dates: start: 20120118, end: 20120121
  4. CILOXAN [Suspect]
     Indication: ASTHMA
     Dosage: 15 GTT BID RESPIRATORY (INHALATION), 8 GTT BD RESPIRATORY INHALATION
     Route: 055
     Dates: start: 20120130
  5. CILOXAN [Suspect]
     Indication: PULMONARY CONGESTION
     Dosage: 15 GTT BID RESPIRATORY (INHALATION), 8 GTT BD RESPIRATORY INHALATION
     Route: 055
     Dates: start: 20120130
  6. SPIRIVA [Concomitant]
  7. ATACAND [Concomitant]
  8. FOSTER [Concomitant]

REACTIONS (4)
  - DYSPNOEA [None]
  - OFF LABEL USE [None]
  - LUNG DISORDER [None]
  - INCORRECT ROUTE OF DRUG ADMINISTRATION [None]
